FAERS Safety Report 4356934-X (Version None)
Quarter: 2004Q2

REPORT INFORMATION
  Report Type: 
  Country: None (occurrence: None)
  Receive Date: 20040507
  Receipt Date: 20040427
  Transmission Date: 20050107
  Serious: Yes (Other)
  Sender: FDA-Public Use
  Company Number: JP-JNJFOC-20040402547

PATIENT
  Age: 56 Year
  Sex: Male

DRUGS (3)
  1. LEVOFLOXACIN [Suspect]
     Indication: BRONCHITIS ACUTE
     Dosage: 500 MG, ORAL
     Route: 048
     Dates: start: 20040309, end: 20040313
  2. CORTISON (CORTISONE) [Concomitant]
  3. SYMBICORT (SYMBICORT ^ASTRAZENECA^) [Concomitant]

REACTIONS (7)
  - BURSITIS [None]
  - MUSCLE ATROPHY [None]
  - OEDEMA [None]
  - RHABDOMYOLYSIS [None]
  - SENSATION OF PRESSURE [None]
  - TENDON DISORDER [None]
  - TENDONITIS [None]
